FAERS Safety Report 6822609-8 (Version None)
Quarter: 2010Q3

REPORT INFORMATION
  Report Type: 
  Country: None (occurrence: None)
  Receive Date: 20100708
  Receipt Date: 20100624
  Transmission Date: 20110219
  Serious: Yes (Hospitalization, Other)
  Sender: FDA-Public Use
  Company Number: SE-ELI_LILLY_AND_COMPANY-SE201006007218

PATIENT
  Age: 48 Year
  Sex: Male

DRUGS (6)
  1. ZYPREXA [Suspect]
     Indication: BIPOLAR I DISORDER
     Dosage: UNK, UNKNOWN
  2. ZYPREXA [Suspect]
     Dosage: 22 MG, DAILY (1/D)
     Route: 048
  3. ZYPREXA [Suspect]
     Dosage: 22.5 MG, DAILY (1/D)
     Route: 048
  4. LITHIONIT [Concomitant]
  5. SIMVASTATIN [Concomitant]
  6. PROPAVAN [Concomitant]

REACTIONS (2)
  - OVERDOSE [None]
  - VENOUS THROMBOSIS LIMB [None]
